FAERS Safety Report 20061183 (Version 1)
Quarter: 2021Q4

REPORT INFORMATION
  Report Type: Report from Study
  Country: US (occurrence: None)
  Receive Date: 20211112
  Receipt Date: 20211112
  Transmission Date: 20220303
  Serious: Yes (Other)
  Sender: FDA-Public Use
  Company Number: US-ROCHE-2950760

PATIENT
  Age: 52 Year
  Sex: Male
  Weight: 100 kg

DRUGS (4)
  1. ATEZOLIZUMAB [Suspect]
     Active Substance: ATEZOLIZUMAB
     Indication: Adenocarcinoma of colon
     Dosage: ON 15/FEB/2021, HE RECEIVED LAST DOSE OF ATEZOLIZUMAB PRIOR TO EVENT ONSET.
     Route: 041
     Dates: start: 20210104
  2. LEUCOVORIN CALCIUM [Suspect]
     Active Substance: LEUCOVORIN CALCIUM
     Indication: Adenocarcinoma of colon
     Dosage: ON 15/FEB/2021, HE RECEIVED LAST DOSE OF CALCIUM FOLINATE PRIOR TO EVENT ONSET.
     Route: 042
     Dates: start: 20210215
  3. FLUOROURACIL [Suspect]
     Active Substance: FLUOROURACIL
     Indication: Adenocarcinoma of colon
     Dosage: ON 01/MAR/2021, HE RECEIVED LAST DOSE OF 5-FLUOROURACIL (5-FU).
     Route: 040
     Dates: start: 20210215
  4. OXALIPLATIN [Suspect]
     Active Substance: OXALIPLATIN
     Indication: Adenocarcinoma of colon
     Dosage: ON 01/MAR/2021, HE RECEIVED LAST DOSE OF OXALIPALTIN.
     Route: 042
     Dates: start: 20210215

REACTIONS (1)
  - Diarrhoea [Recovering/Resolving]

NARRATIVE: CASE EVENT DATE: 20210223
